FAERS Safety Report 9255793 (Version 1)
Quarter: 2013Q2

REPORT INFORMATION
  Report Type: Spontaneous
  Country: US (occurrence: US)
  Receive Date: 20130425
  Receipt Date: 20130425
  Transmission Date: 20140414
  Serious: Yes (Hospitalization)
  Sender: FDA-Public Use
  Company Number: US-ABBOTT-13P-163-1077960-00

PATIENT
  Sex: Female
  Weight: 99.43 kg

DRUGS (4)
  1. SYNTHROID [Suspect]
     Indication: THYROID DISORDER
     Dates: start: 199801
  2. SYNTHROID [Suspect]
  3. SYNTHROID [Suspect]
  4. VYVANSE [Concomitant]
     Indication: ATTENTION DEFICIT/HYPERACTIVITY DISORDER

REACTIONS (7)
  - Blood thyroid stimulating hormone increased [Unknown]
  - Blood thyroid stimulating hormone abnormal [Unknown]
  - Weight increased [Unknown]
  - Drug ineffective [Unknown]
  - Nervous system disorder [Unknown]
  - Tri-iodothyronine increased [Unknown]
  - Thyroxine increased [Unknown]
